FAERS Safety Report 16051692 (Version 2)
Quarter: 2019Q2

REPORT INFORMATION
  Report Type: Spontaneous
  Country: US (occurrence: US)
  Receive Date: 20190308
  Receipt Date: 20190416
  Transmission Date: 20190711
  Serious: No
  Sender: FDA-Public Use
  Company Number: US-ASTRAZENECA-2019SE23818

PATIENT
  Sex: Female

DRUGS (1)
  1. SYMBICORT [Suspect]
     Active Substance: BUDESONIDE\FORMOTEROL FUMARATE DIHYDRATE
     Indication: ASTHMA
     Dosage: 160/4.5 MCG, TWO TIMES A DAY
     Route: 055

REACTIONS (7)
  - Intentional product misuse [Unknown]
  - Hypersensitivity [Unknown]
  - Off label use [Unknown]
  - Device failure [Unknown]
  - Device issue [Unknown]
  - Incorrect dose administered [Unknown]
  - Incorrect route of product administration [Unknown]
